FAERS Safety Report 17101386 (Version 1)
Quarter: 2019Q4

REPORT INFORMATION
  Report Type: Spontaneous
  Country: GB (occurrence: GB)
  Receive Date: 20191202
  Receipt Date: 20191202
  Transmission Date: 20200122
  Serious: Yes (Other)
  Sender: FDA-Public Use
  Company Number: NVSC2019GB048608

PATIENT
  Age: 56 Year
  Sex: Female
  Weight: 73 kg

DRUGS (4)
  1. METRONIDAZOLE. [Suspect]
     Active Substance: METRONIDAZOLE
     Indication: PRODUCT USED FOR UNKNOWN INDICATION
     Dosage: 800 MG, QD
     Route: 065
     Dates: start: 20190916
  2. CLOTRIMAZOLE. [Concomitant]
     Active Substance: CLOTRIMAZOLE
     Indication: PRODUCT USED FOR UNKNOWN INDICATION
     Dosage: UNK UNK, QD (APPLY 2-3 TIMES/DAY )
     Route: 065
     Dates: start: 20190906, end: 20190913
  3. CLINDAMYCIN. [Concomitant]
     Active Substance: CLINDAMYCIN
     Indication: PRODUCT USED FOR UNKNOWN INDICATION
     Dosage: APPLY AT NIGHT
     Route: 065
     Dates: start: 20190917
  4. LANSOPRAZOLE. [Concomitant]
     Active Substance: LANSOPRAZOLE
     Indication: PRODUCT USED FOR UNKNOWN INDICATION
     Dosage: 1 DF, QD
     Route: 065
     Dates: start: 20190906

REACTIONS (1)
  - Oral candidiasis [Recovered/Resolved]

NARRATIVE: CASE EVENT DATE: 20190919
